FAERS Safety Report 6291980-0 (Version None)
Quarter: 2009Q3

REPORT INFORMATION
  Report Type: 
  Country: None (occurrence: None)
  Receive Date: 20090730
  Receipt Date: 20090723
  Transmission Date: 20100115
  Serious: Yes (Other)
  Sender: FDA-Public Use
  Company Number: FR-BAXTER-2009BH012021

PATIENT
  Age: 67 Year
  Sex: Male

DRUGS (3)
  1. ENDOXAN BAXTER [Suspect]
     Indication: LYMPHOMA
     Route: 042
     Dates: start: 20090406, end: 20090406
  2. ONDANSETRON HCL [Suspect]
     Indication: LYMPHOMA
     Route: 042
     Dates: start: 20090406, end: 20090406
  3. MABTHERA [Concomitant]
     Indication: DRUG USE FOR UNKNOWN INDICATION
     Route: 065

REACTIONS (2)
  - LARYNGEAL OEDEMA [None]
  - PRURITUS [None]
